FAERS Safety Report 24793570 (Version 1)
Quarter: 2024Q4

REPORT INFORMATION
  Report Type: Spontaneous
  Country: US (occurrence: US)
  Receive Date: 20241231
  Receipt Date: 20241231
  Transmission Date: 20250114
  Serious: Yes (Other)
  Sender: PFIZER
  Company Number: US-PFIZER INC-202400332686

PATIENT
  Age: 76 Year
  Sex: Male
  Weight: 108.86 kg

DRUGS (3)
  1. VYNDAMAX [Suspect]
     Active Substance: TAFAMIDIS
     Dosage: 61 MG
  2. METOPROLOL [Suspect]
     Active Substance: METOPROLOL
     Dosage: 100 MG, 2X/DAY
  3. METOPROLOL [Suspect]
     Active Substance: METOPROLOL
     Dosage: 200 MG, 2X/DAY

REACTIONS (3)
  - Atrial fibrillation [Unknown]
  - Dyspnoea [Unknown]
  - Insomnia [Unknown]
